FAERS Safety Report 5163039-7 (Version None)
Quarter: 2006Q4

REPORT INFORMATION
  Report Type: 
  Country: None (occurrence: None)
  Receive Date: 20061201
  Receipt Date: 20010216
  Transmission Date: 20070319
  Serious: Yes (Hospitalization)
  Sender: FDA-Public Use
  Company Number: FR-BOEHRINGER INGELHEIM PHARMACEUTICALS, INC.-2001-FF-S0098

PATIENT
  Sex: Male
  Weight: 2.8 kg

DRUGS (6)
  1. VIRAMUNE [Suspect]
     Indication: HUMAN IMMUNODEFICIENCY VIRUS TRANSMISSION
     Route: 048
  2. RETROVIR [Suspect]
     Indication: HUMAN IMMUNODEFICIENCY VIRUS TRANSMISSION
     Dates: start: 20000929, end: 20001027
  3. COMBIVIR [Concomitant]
     Indication: HIV INFECTION
     Route: 064
     Dates: end: 20000929
  4. ALDOMET [Concomitant]
     Indication: HYPERTENSION
     Route: 015
     Dates: end: 20000929
  5. CATAPRES [Concomitant]
     Indication: HYPERTENSION
     Route: 015
     Dates: end: 20000929
  6. INSULIN [Concomitant]
     Indication: DIABETES MELLITUS
     Route: 015
     Dates: end: 20000929

REACTIONS (3)
  - ANAEMIA [None]
  - LACTIC ACIDOSIS [None]
  - NEONATAL DISORDER [None]
